FAERS Safety Report 16589465 (Version 1)
Quarter: 2019Q3

REPORT INFORMATION
  Report Type: Spontaneous
  Country: KE (occurrence: KE)
  Receive Date: 20190718
  Receipt Date: 20190718
  Transmission Date: 20191004
  Serious: Yes (Hospitalization, Other)
  Sender: FDA-Public Use
  Company Number: KE-SA-2019SA190740

PATIENT
  Age: 26 Year
  Sex: Male

DRUGS (9)
  1. PYRAZINAMIDE. [Suspect]
     Active Substance: PYRAZINAMIDE
     Indication: SPLEEN TUBERCULOSIS
  2. PARACETAMOL [Concomitant]
     Active Substance: ACETAMINOPHEN
     Indication: ANTIPYRESIS
     Dosage: 1 G, TID
  3. CEFTAZIDIME. [Concomitant]
     Active Substance: CEFTAZIDIME
     Dosage: 1 G, 8 HR
  4. ISONIAZID. [Suspect]
     Active Substance: ISONIAZID
     Indication: SPLEEN TUBERCULOSIS
  5. AMPHOTERICIN B. [Concomitant]
     Active Substance: AMPHOTERICIN B
  6. RIFAMPICIN [Suspect]
     Active Substance: RIFAMPIN
     Indication: SPLEEN TUBERCULOSIS
  7. ETHAMBUTOL [Suspect]
     Active Substance: ETHAMBUTOL HYDROCHLORIDE
     Indication: SPLEEN TUBERCULOSIS
  8. METRONIDAZOLE. [Concomitant]
     Active Substance: METRONIDAZOLE
     Dosage: 500 MG, 8 H
  9. VANCOMYCIN [Concomitant]
     Active Substance: VANCOMYCIN
     Dosage: 1 G, 8 HR
     Route: 042

REACTIONS (10)
  - Cough [Recovered/Resolved]
  - Pyrexia [Recovered/Resolved]
  - Dyspnoea [Recovered/Resolved]
  - Chest pain [Recovered/Resolved]
  - Leukopenia [Recovered/Resolved]
  - Paradoxical drug reaction [Recovered/Resolved]
  - Febrile neutropenia [Recovered/Resolved]
  - Pleural effusion [Recovered/Resolved]
  - Lymphadenopathy mediastinal [Recovered/Resolved]
  - Abdominal pain [Recovered/Resolved]
